FAERS Safety Report 19444264 (Version 2)
Quarter: 2021Q2

REPORT INFORMATION
  Report Type: Spontaneous
  Country: JP (occurrence: JP)
  Receive Date: 20210621
  Receipt Date: 20210630
  Transmission Date: 20210717
  Serious: Yes (Other)
  Sender: FDA-Public Use
  Company Number: JP-COVIS PHARMA GMBH-2021COV22897

PATIENT
  Age: 29 Year
  Sex: Female

DRUGS (7)
  1. CICLESONIDE [Suspect]
     Active Substance: CICLESONIDE
     Indication: ACUTE RESPIRATORY DISTRESS SYNDROME
     Route: 055
  2. DEXAMETHASONE. [Suspect]
     Active Substance: DEXAMETHASONE
     Indication: COVID-19 PNEUMONIA
     Route: 065
  3. REMDESIVIR. [Suspect]
     Active Substance: REMDESIVIR
     Indication: COVID-19 PNEUMONIA
     Route: 065
  4. CICLESONIDE [Suspect]
     Active Substance: CICLESONIDE
     Indication: COVID-19
     Route: 055
  5. HEPARIN SODIUM. [Suspect]
     Active Substance: HEPARIN SODIUM
     Indication: COVID-19 PNEUMONIA
     Dosage: 10,000 U/DAY
     Route: 065
  6. SULBACTAM/AMPICILLIN [Suspect]
     Active Substance: AMPICILLIN SODIUM\SULBACTAM SODIUM
     Indication: COVID-19 PNEUMONIA
     Route: 065
  7. TOCILIZUMAB. [Suspect]
     Active Substance: TOCILIZUMAB
     Indication: COVID-19 PNEUMONIA
     Dosage: 8 MG/KG
     Route: 065

REACTIONS (3)
  - Off label use [Unknown]
  - Premature delivery [Unknown]
  - Exposure during pregnancy [Unknown]
